FAERS Safety Report 17188205 (Version 2)
Quarter: 2019Q4

REPORT INFORMATION
  Report Type: Spontaneous
  Country: CH (occurrence: CH)
  Receive Date: 20191221
  Receipt Date: 20191226
  Transmission Date: 20200122
  Serious: Yes (Other)
  Sender: FDA-Public Use
  Company Number: CH-MYLANLABS-2019M1126281

PATIENT
  Age: 30 Year
  Sex: Female

DRUGS (22)
  1. NEXIUM [Suspect]
     Active Substance: ESOMEPRAZOLE MAGNESIUM
     Indication: PRODUCT USED FOR UNKNOWN INDICATION
     Dosage: 40 MILLIGRAM, QD BY NGT FROM 8 AM
     Route: 042
     Dates: start: 20191125
  2. CYMBALTA [Suspect]
     Active Substance: DULOXETINE HYDROCHLORIDE
     Indication: PRODUCT USED FOR UNKNOWN INDICATION
     Dosage: 30 MILLIGRAM, QD, AT 8:00 AM BY NGT
     Route: 050
     Dates: start: 20191031
  3. LAXOBERON [Suspect]
     Active Substance: SODIUM PICOSULFATE
     Indication: PRODUCT USED FOR UNKNOWN INDICATION
     Dosage: UNK, AS NECESSARY
  4. BACTRIM [Suspect]
     Active Substance: SULFAMETHOXAZOLE\TRIMETHOPRIM
     Indication: PRODUCT USED FOR UNKNOWN INDICATION
     Dosage: 1 DOSAGE FORM, QOD, AT 8:00 AM
     Route: 050
     Dates: start: 20191114
  5. AZACTAM [Concomitant]
     Active Substance: AZTREONAM
     Dosage: UNK, TID
     Dates: start: 20191201
  6. ZAVICEFTA [Concomitant]
     Active Substance: AVIBACTAM SODIUM\CEFTAZIDIME
     Dosage: UNK, TID
     Dates: start: 20191201
  7. PASPERTIN                          /01169401/ [Concomitant]
     Dosage: UNK, TID
     Dates: start: 20191128
  8. MORPHINE HCL [Concomitant]
     Active Substance: MORPHINE HYDROCHLORIDE
     Dosage: UNK, Q4H
     Dates: start: 20191115
  9. ZYPREXA [Concomitant]
     Active Substance: OLANZAPINE
     Dosage: UNK, PM (IN THE EVENING)
     Dates: start: 20191129
  10. ONDANSETRON [Concomitant]
     Active Substance: ONDANSETRON
     Dosage: UNK, PRN, AS NECESSARY
     Dates: start: 20191114
  11. LIPANTHYL [Suspect]
     Active Substance: FENOFIBRATE
     Indication: PRODUCT USED FOR UNKNOWN INDICATION
     Dosage: 200 MILLIGRAM, QD, AT 8:00 AM BY NGT
     Route: 050
     Dates: start: 20191125
  12. IMOVANE [Concomitant]
     Active Substance: ZOPICLONE
     Dosage: UNK, QD (AT BEDTIME)
     Dates: start: 20191120
  13. MYCOSTATINE [Concomitant]
     Active Substance: NYSTATIN
     Dosage: UNK, QID
     Dates: start: 20191114
  14. TYGACIL [Concomitant]
     Active Substance: TIGECYCLINE
     Dosage: UNK, BID
     Dates: start: 20191114
  15. NEXIUM [Suspect]
     Active Substance: ESOMEPRAZOLE MAGNESIUM
     Indication: PRODUCT USED FOR UNKNOWN INDICATION
     Dosage: 40 MILLIGRAM, QD, AT 8:00 AM BY NGT
     Route: 050
     Dates: start: 20191125
  16. MAGNESIUM SULFATE. [Suspect]
     Active Substance: MAGNESIUM SULFATE
     Indication: PRODUCT USED FOR UNKNOWN INDICATION
     Dosage: 8 MILLIMOLE, QD, AT 8:00 AM
     Route: 042
     Dates: start: 20191117
  17. CALCIUM GLUCONATE. [Concomitant]
     Active Substance: CALCIUM GLUCONATE
     Dosage: UNK, AT 10:00 AM
     Dates: start: 20191118
  18. DAFALGAN [Concomitant]
     Active Substance: ACETAMINOPHEN
     Dosage: UNK, PRN, AS NECESSARY
     Dates: start: 20191114
  19. VALTREX [Suspect]
     Active Substance: VALACYCLOVIR HYDROCHLORIDE
     Indication: PRODUCT USED FOR UNKNOWN INDICATION
     Dosage: 500 MILLIGRAM, QD, AT 8:00 AM BY NGT
     Route: 050
     Dates: start: 20191120
  20. LAXOBERON [Suspect]
     Active Substance: SODIUM PICOSULFATE
     Indication: PRODUCT USED FOR UNKNOWN INDICATION
     Dosage: 10 MILLIGRAM, QD, AT 8:00 AM BY NGT
     Route: 050
     Dates: start: 20191012
  21. CALCIMAGON D3 [Suspect]
     Active Substance: CALCIUM\CHOLECALCIFEROL
     Indication: PRODUCT USED FOR UNKNOWN INDICATION
     Dosage: 1 DOSAGE FORM, QD, AT 8:00 AM BY NGT
     Route: 050
     Dates: start: 20191125
  22. TEMESTA                            /00273201/ [Concomitant]
     Active Substance: LORAZEPAM
     Dosage: UNK, PRN, AS NECESSARY
     Dates: start: 20191008

REACTIONS (1)
  - Vomiting [Not Recovered/Not Resolved]

NARRATIVE: CASE EVENT DATE: 201911
